FAERS Safety Report 25515302 (Version 1)
Quarter: 2025Q3

REPORT INFORMATION
  Report Type: Spontaneous
  Country: US (occurrence: US)
  Receive Date: 20250704
  Receipt Date: 20250704
  Transmission Date: 20251020
  Serious: No
  Sender: SANOFI AVENTIS
  Company Number: US-SA-2025SA187666

PATIENT
  Age: 7 Year
  Sex: Female

DRUGS (7)
  1. DUPIXENT [Suspect]
     Active Substance: DUPILUMAB
     Indication: Dermatitis atopic
     Dosage: 300 MG, Q4W
     Route: 058
     Dates: end: 20250507
  2. TRIAMCINOLONE ACETONIDE [Concomitant]
     Active Substance: TRIAMCINOLONE ACETONIDE
  3. UREA [Concomitant]
     Active Substance: UREA
  4. MUPIROCIN [Concomitant]
     Active Substance: MUPIROCIN
  5. FAMOTIDINE [Concomitant]
     Active Substance: FAMOTIDINE
  6. HYDROCORTISONE [Concomitant]
     Active Substance: HYDROCORTISONE
  7. AMOXICILLIN [Concomitant]
     Active Substance: AMOXICILLIN

REACTIONS (2)
  - Rebound atopic dermatitis [Unknown]
  - Therapeutic response decreased [Unknown]

NARRATIVE: CASE EVENT DATE: 20250101
